FAERS Safety Report 5215298-X (Version None)
Quarter: 2007Q1

REPORT INFORMATION
  Report Type: 
  Country: None (occurrence: None)
  Receive Date: 20070116
  Receipt Date: 20070110
  Transmission Date: 20070707
  Serious: Yes (Death)
  Sender: FDA-Public Use
  Company Number: HQWYE056210JAN07

PATIENT

DRUGS (1)
  1. CORDARONE [Suspect]
     Dosage: 300 MG BOLUS AND 1050 MG (6 HOUR INFUSION TIME)
     Route: 042

REACTIONS (2)
  - ACCIDENTAL OVERDOSE [None]
  - INCORRECT DRUG ADMINISTRATION RATE [None]
